FAERS Safety Report 17186171 (Version 1)
Quarter: 2019Q4

REPORT INFORMATION
  Report Type: Report from Study
  Country: IT (occurrence: IT)
  Receive Date: 20191220
  Receipt Date: 20191220
  Transmission Date: 20200122
  Serious: Yes (Hospitalization)
  Sender: FDA-Public Use
  Company Number: IT-ASTRAZENECA-2019SF44287

PATIENT
  Age: 66 Year
  Sex: Male

DRUGS (3)
  1. SEROQUEL [Suspect]
     Active Substance: QUETIAPINE FUMARATE
     Indication: PRODUCT ADMINISTRATION ERROR
     Dosage: 200.0MG ONCE/SINGLE ADMINISTRATION
     Route: 048
     Dates: start: 20191001, end: 20191001
  2. GARDENALE [Suspect]
     Active Substance: PHENOBARBITAL
     Indication: PRODUCT ADMINISTRATION ERROR
     Dosage: 100.0MG ONCE/SINGLE ADMINISTRATION
     Route: 048
     Dates: start: 20191001, end: 20191001
  3. TEGRETOL [Suspect]
     Active Substance: CARBAMAZEPINE
     Indication: PRODUCT ADMINISTRATION ERROR
     Dosage: 400.0MG ONCE/SINGLE ADMINISTRATION
     Route: 048
     Dates: start: 20191001, end: 20191001

REACTIONS (2)
  - Medication error [Recovering/Resolving]
  - Sopor [Recovering/Resolving]

NARRATIVE: CASE EVENT DATE: 20191001
